FAERS Safety Report 24583406 (Version 1)
Quarter: 2024Q4

REPORT INFORMATION
  Report Type: Spontaneous
  Country: US (occurrence: US)
  Receive Date: 20241106
  Receipt Date: 20241106
  Transmission Date: 20250115
  Serious: Yes (Other)
  Sender: TEVA
  Company Number: US-TEVA-VS-3259233

PATIENT
  Age: 77 Year
  Sex: Female

DRUGS (2)
  1. METHOTREXATE [Suspect]
     Active Substance: METHOTREXATE
     Indication: Arthritis
     Dosage: THREE TABLETS
     Route: 048
     Dates: start: 202410
  2. METHOTREXATE [Suspect]
     Active Substance: METHOTREXATE
     Indication: Arthritis
     Dosage: SIX TABLETS
     Route: 048
     Dates: start: 202410

REACTIONS (5)
  - Visual impairment [Unknown]
  - Stomatitis [Not Recovered/Not Resolved]
  - Candida infection [Unknown]
  - Contraindicated product prescribed [Unknown]
  - Alopecia [Unknown]

NARRATIVE: CASE EVENT DATE: 20241001
